FAERS Safety Report 7987671-8 (Version None)
Quarter: 2011Q4

REPORT INFORMATION
  Report Type: 
  Country: None (occurrence: None)
  Receive Date: 20111216
  Receipt Date: 20111208
  Transmission Date: 20120403
  Serious: Yes (Other)
  Sender: FDA-Public Use
  Company Number: US-ABBOTT-11P-163-0882751-00

PATIENT
  Sex: Male
  Weight: 89.892 kg

DRUGS (2)
  1. HUMIRA [Suspect]
     Indication: CROHN'S DISEASE
     Route: 058
     Dates: start: 20110601, end: 20111101
  2. HUMIRA [Suspect]
     Route: 058

REACTIONS (6)
  - GASTROINTESTINAL ULCER [None]
  - SMALL INTESTINAL RESECTION [None]
  - INTESTINAL FISTULA [None]
  - INTESTINAL ULCER [None]
  - GASTROINTESTINAL INFLAMMATION [None]
  - ANASTOMOTIC STENOSIS [None]
